FAERS Safety Report 9514873 (Version 2)
Quarter: 2013Q3

REPORT INFORMATION
  Report Type: Spontaneous
  Country: US (occurrence: US)
  Receive Date: 20130911
  Receipt Date: 20130911
  Transmission Date: 20140515
  Serious: Yes (Other)
  Sender: FDA-Public Use
  Company Number: US-JNJFOC-20130602170

PATIENT
  Age: 77 Year
  Sex: Female
  Weight: 64.41 kg

DRUGS (3)
  1. DOXORUBICIN HYDROCHLORIDE (DOXIL) [Suspect]
     Indication: BREAST CANCER METASTATIC
     Dosage: 69 SOLUTION EVERY MONTH
     Route: 042
     Dates: start: 20130515
  2. ALOXI [Suspect]
     Indication: NAUSEA
     Route: 065
  3. VITAMIN D [Concomitant]
     Indication: BONE DISORDER
     Dosage: 50000U
     Route: 048

REACTIONS (26)
  - Stomatitis [Recovering/Resolving]
  - White blood cell count decreased [Not Recovered/Not Resolved]
  - Hypotension [Recovered/Resolved]
  - Arthritis [Recovered/Resolved]
  - Drug ineffective [Unknown]
  - Decreased appetite [Recovered/Resolved]
  - Positron emission tomogram abnormal [Not Recovered/Not Resolved]
  - Drug dose omission [Not Recovered/Not Resolved]
  - Rash [Recovering/Resolving]
  - Pruritus [Recovering/Resolving]
  - Constipation [Recovering/Resolving]
  - Fatigue [Recovering/Resolving]
  - Asthenia [Not Recovered/Not Resolved]
  - Cold sweat [Unknown]
  - Hyperhidrosis [Unknown]
  - Hypokinesia [Not Recovered/Not Resolved]
  - Vertigo [Recovered/Resolved]
  - Dizziness [Unknown]
  - Dehydration [Unknown]
  - Urine output decreased [Unknown]
  - Laryngitis [Not Recovered/Not Resolved]
  - Weight decreased [Not Recovered/Not Resolved]
  - Muscle disorder [Unknown]
  - Dysphagia [Recovering/Resolving]
  - Skin exfoliation [Recovering/Resolving]
  - Onychalgia [Not Recovered/Not Resolved]
